FAERS Safety Report 4908435-5 (Version None)
Quarter: 2006Q1

REPORT INFORMATION
  Report Type: 
  Country: None (occurrence: None)
  Receive Date: 20060210
  Receipt Date: 20050617
  Transmission Date: 20060701
  Serious: No
  Sender: FDA-Public Use
  Company Number: US-GLAXOSMITHKLINE-A0563166A

PATIENT
  Age: 55 Year
  Sex: Male

DRUGS (5)
  1. PAXIL CR [Suspect]
     Dosage: 37.5MG PER DAY
     Route: 048
  2. COUGH SYRUP [Concomitant]
  3. PREDNISON [Concomitant]
  4. CRESTOR [Concomitant]
  5. COZAAR [Concomitant]

REACTIONS (3)
  - ANXIETY [None]
  - DIZZINESS [None]
  - INSOMNIA [None]
